FAERS Safety Report 6048584-4 (Version None)
Quarter: 2009Q1

REPORT INFORMATION
  Report Type: 
  Country: None (occurrence: None)
  Receive Date: 20090123
  Receipt Date: 20090114
  Transmission Date: 20090719
  Serious: Yes (Hospitalization)
  Sender: FDA-Public Use
  Company Number: ES-PFIZER INC-2008159609

PATIENT

DRUGS (6)
  1. PHENYTOIN SODIUM CAP [Suspect]
     Indication: EPILEPSY
     Route: 048
     Dates: start: 20050101, end: 20080901
  2. ENALAPRILAT [Concomitant]
     Indication: HYPERTENSION
     Dosage: 20 MG, 1X/DAY
     Route: 048
     Dates: start: 20050101
  3. BISOPROLOL FUMARATE [Concomitant]
     Indication: HYPERTENSION
     Dosage: 2.5 MG, 1X/DAY
     Route: 048
     Dates: start: 20050101
  4. SALIDUR [Concomitant]
     Route: 048
     Dates: start: 20050101
  5. ACETYLSALICYLIC ACID [Concomitant]
     Indication: MYOCARDIAL ISCHAEMIA
     Dosage: 150 MG, 1X/DAY
     Route: 048
     Dates: start: 20050101
  6. SIMVASTATIN [Concomitant]
     Indication: HYPERCHOLESTEROLAEMIA
     Dosage: 40 MG, 1X/DAY
     Route: 048
     Dates: start: 20050101

REACTIONS (3)
  - DIZZINESS [None]
  - FALL [None]
  - SYNCOPE [None]
